FAERS Safety Report 9505650 (Version 1)
Quarter: 2013Q1

REPORT INFORMATION
  Report Type: Spontaneous
  Country: US (occurrence: None)
  Receive Date: 20130225
  Receipt Date: 20130225
  Transmission Date: 20140127
  Serious: No
  Sender: FDA-Public Use
  Company Number: 368285

PATIENT
  Age: 51 Year
  Sex: Female

DRUGS (4)
  1. VICTOZA (LIRAGLUTIDE) SOLUTION FOR INJECTION 6MG/ML [Suspect]
     Indication: TYPE 2 DIABETES MELLITUS
     Route: 058
     Dates: start: 20121212
  2. COREG (CARVEDILOL) [Suspect]
     Indication: CARDIAC DISORDER
  3. HUMALOG (INSULIN LISPRO) [Suspect]
     Indication: TYPE 2 DIABETES MELLITUS
     Route: 058
  4. LANTUS (INSULINE GLARGINE) [Suspect]
     Indication: TYPE 2 DIABETES MELLITUS
     Route: 058

REACTIONS (2)
  - Blood glucose increased [None]
  - Blood glucose decreased [None]
